FAERS Safety Report 23673474 (Version 2)
Quarter: 2024Q2

REPORT INFORMATION
  Report Type: Spontaneous
  Country: TW (occurrence: TW)
  Receive Date: 20240326
  Receipt Date: 20240508
  Transmission Date: 20240715
  Serious: Yes (Death, Hospitalization, Other)
  Sender: FDA-Public Use
  Company Number: TW-BRISTOL-MYERS SQUIBB COMPANY-2024-047658

PATIENT
  Age: 74 Year
  Sex: Male
  Weight: 77 kg

DRUGS (1)
  1. ELIQUIS [Suspect]
     Active Substance: APIXABAN
     Indication: Atrial fibrillation
     Route: 048
     Dates: start: 202309, end: 20240319

REACTIONS (13)
  - Activated partial thromboplastin time prolonged [Recovered/Resolved]
  - Arthritis infective [Not Recovered/Not Resolved]
  - Septic shock [Fatal]
  - Haemoglobin decreased [Unknown]
  - International normalised ratio abnormal [Unknown]
  - Fibrin D dimer increased [Unknown]
  - Blood urea abnormal [Unknown]
  - Blood creatine abnormal [Unknown]
  - Blood sodium abnormal [Unknown]
  - Blood potassium abnormal [Unknown]
  - White blood cell disorder [Unknown]
  - Red blood cell abnormality [Unknown]
  - Haematocrit abnormal [Unknown]

NARRATIVE: CASE EVENT DATE: 20240308
